FAERS Safety Report 17659855 (Version 1)
Quarter: 2020Q2

REPORT INFORMATION
  Report Type: Spontaneous
  Country: US (occurrence: US)
  Receive Date: 20200413
  Receipt Date: 20200413
  Transmission Date: 20200713
  Serious: No
  Sender: FDA-Public Use
  Company Number: US-BION-008168

PATIENT
  Sex: Female

DRUGS (2)
  1. ALEVE [Suspect]
     Active Substance: NAPROXEN SODIUM
     Indication: PRODUCT USED FOR UNKNOWN INDICATION
     Dosage: TABLESPOON
  2. ALEVE ARTHRITIS CAPLETS 100 CT [Concomitant]
     Dosage: TABLESPOON
     Route: 065

REACTIONS (1)
  - Incorrect product administration duration [Not Recovered/Not Resolved]
